FAERS Safety Report 8487766-9 (Version None)
Quarter: 2012Q3

REPORT INFORMATION
  Report Type: 
  Country: None (occurrence: None)
  Receive Date: 20120705
  Receipt Date: 20120628
  Transmission Date: 20120928
  Serious: Yes (Other)
  Sender: FDA-Public Use
  Company Number: VE-PFIZER INC-2012121276

PATIENT
  Age: 78 Year
  Sex: Male

DRUGS (3)
  1. LERCADIP [Concomitant]
     Indication: HYPERTENSION
     Dosage: 20 MG, 1X/DAY
     Route: 048
  2. LIPITOR [Suspect]
     Indication: CEREBROVASCULAR ACCIDENT
     Dosage: 40 MG, 1X/DAY
     Route: 048
     Dates: start: 20100101
  3. MICARDIS [Concomitant]
     Indication: HYPERTENSION
     Dosage: 80 MG, 1X/DAY
     Route: 048

REACTIONS (1)
  - POLYP [None]
